FAERS Safety Report 25977148 (Version 2)
Quarter: 2025Q4

REPORT INFORMATION
  Report Type: Spontaneous
  Country: US (occurrence: US)
  Receive Date: 20251030
  Receipt Date: 20251224
  Transmission Date: 20260117
  Serious: Yes (Other)
  Sender: AXSOME THERAPEUTICS
  Company Number: US-AXS-AXS202510-001824

PATIENT
  Age: 32 Year
  Sex: Female

DRUGS (5)
  1. SUNOSI [Suspect]
     Active Substance: SOLRIAMFETOL
     Indication: Product used for unknown indication
     Route: 048
     Dates: end: 202510
  2. LUMRYZ [Suspect]
     Active Substance: SODIUM OXYBATE
     Indication: Narcolepsy
     Dosage: ONCE NIGHTLY
     Route: 048
     Dates: start: 202509, end: 202509
  3. LUMRYZ [Suspect]
     Active Substance: SODIUM OXYBATE
     Indication: Cataplexy
     Dosage: ONCE NIGHTLY
     Route: 048
     Dates: start: 202509, end: 2025
  4. LUMRYZ [Suspect]
     Active Substance: SODIUM OXYBATE
     Dosage: ONCE NIGHTLY
     Route: 048
     Dates: start: 2025
  5. LUMRYZ [Suspect]
     Active Substance: SODIUM OXYBATE
     Dosage: ONCE NIGHTLY
     Route: 048
     Dates: start: 2025

REACTIONS (13)
  - Atrial fibrillation [Recovered/Resolved]
  - Sleep apnoea syndrome [Recovering/Resolving]
  - Hypoaesthesia oral [Unknown]
  - Feeling drunk [Not Recovered/Not Resolved]
  - Retching [Recovered/Resolved]
  - Panic attack [Unknown]
  - Middle insomnia [Not Recovered/Not Resolved]
  - Insomnia [Unknown]
  - Anxiety [Unknown]
  - Nausea [Unknown]
  - Vomiting [Unknown]
  - Decreased appetite [Not Recovered/Not Resolved]
  - Palpitations [Recovered/Resolved]

NARRATIVE: CASE EVENT DATE: 20250901
